FAERS Safety Report 17256591 (Version 1)
Quarter: 2020Q1

REPORT INFORMATION
  Report Type: Spontaneous
  Country: US (occurrence: US)
  Receive Date: 20200109
  Receipt Date: 20200109
  Transmission Date: 20200409
  Serious: No
  Sender: FDA-Public Use
  Company Number: None

PATIENT
  Age: 51 Year
  Sex: Male
  Weight: 89 kg

DRUGS (3)
  1. PROPOFOL DRIP [Suspect]
     Active Substance: PROPOFOL
     Indication: SEDATIVE THERAPY
     Dosage: ?          OTHER FREQUENCY:CONTINUOUS INFUSIO;?
     Route: 041
     Dates: start: 20191222, end: 20191223
  2. D5W/0.45NS WITH KCL 20 MEQ/L + THIAMINE 100 MG + FOLIC ACID 1 MG + MVI [Suspect]
     Active Substance: FOLIC ACID\MINERALS\VITAMINS
     Indication: ALCOHOL POISONING
     Route: 042
     Dates: start: 20191223, end: 20191223
  3. DEXMEDETOMIDINE. [Concomitant]
     Active Substance: DEXMEDETOMIDINE
     Dates: start: 20191222, end: 20191223

REACTIONS (2)
  - Blister [None]
  - Peripheral swelling [None]

NARRATIVE: CASE EVENT DATE: 20191223
